FAERS Safety Report 8932630 (Version 1)
Quarter: 2012Q4

REPORT INFORMATION
  Report Type: Report from Study
  Country: CA (occurrence: CA)
  Receive Date: 20121129
  Receipt Date: 20121129
  Transmission Date: 20130627
  Serious: No
  Sender: FDA-Public Use
  Company Number: CA-JNJFOC-20121114133

PATIENT
  Age: 43 Year
  Sex: Male
  Weight: 88 kg

DRUGS (3)
  1. REMICADE [Suspect]
     Indication: RHEUMATOID ARTHRITIS
     Route: 042
     Dates: start: 20100127
  2. REMICADE [Suspect]
     Indication: PSORIASIS
     Route: 042
     Dates: start: 20100127
  3. VALACYCLOVIR [Concomitant]
     Route: 065

REACTIONS (1)
  - Herpes zoster [Unknown]
